FAERS Safety Report 6372099-7 (Version None)
Quarter: 2009Q3

REPORT INFORMATION
  Report Type: 
  Country: None (occurrence: None)
  Receive Date: 20090917
  Receipt Date: 20090904
  Transmission Date: 20100115
  Serious: Yes (Other)
  Sender: FDA-Public Use
  Company Number: ADR18982009

PATIENT
  Age: 38 Year
  Sex: Female

DRUGS (6)
  1. SALBUTAMOL (MFR: UNKNOWN) [Suspect]
     Indication: ASTHMA
     Dosage: INHALATION
     Route: 055
  2. ASPIRIN [Concomitant]
  3. BRONCHODILATOR [Concomitant]
  4. ENOXAPARIN [Concomitant]
  5. FUROSEMIDE (80 MG) [Concomitant]
  6. PREDNISOLONE [Concomitant]

REACTIONS (19)
  - AKINESIA [None]
  - ANXIETY [None]
  - BLOOD PRESSURE DECREASED [None]
  - CAESAREAN SECTION [None]
  - CARDIOMEGALY [None]
  - CHEST PAIN [None]
  - COUGH [None]
  - DRUG EXPOSURE DURING PREGNANCY [None]
  - DYSKINESIA [None]
  - EJECTION FRACTION DECREASED [None]
  - EMOTIONAL DISTRESS [None]
  - HEART TRANSPLANT [None]
  - MITRAL VALVE INCOMPETENCE [None]
  - OEDEMA PERIPHERAL [None]
  - PERIPARTUM CARDIOMYOPATHY [None]
  - TACHYCARDIA [None]
  - THROMBOSIS [None]
  - TRICUSPID VALVE INCOMPETENCE [None]
  - VENTRICULAR DYSFUNCTION [None]
